FAERS Safety Report 6680937-3 (Version None)
Quarter: 2010Q2

REPORT INFORMATION
  Report Type: 
  Country: None (occurrence: None)
  Receive Date: 20100412
  Receipt Date: 20100330
  Transmission Date: 20101027
  Serious: Yes (Hospitalization)
  Sender: FDA-Public Use
  Company Number: 009324

PATIENT
  Age: 42 Year
  Sex: Male

DRUGS (2)
  1. PLETAL [Suspect]
     Dosage: ORAL
     Route: 048
  2. WARFARIN (WARFARIN POTASSIUM) [Concomitant]

REACTIONS (6)
  - ANGIOMYOLIPOMA [None]
  - FLANK PAIN [None]
  - PERIRENAL HAEMATOMA [None]
  - RENAL NEOPLASM [None]
  - SHOCK HAEMORRHAGIC [None]
  - TUMOUR HAEMORRHAGE [None]
